FAERS Safety Report 10687181 (Version 1)
Quarter: 2015Q1

REPORT INFORMATION
  Report Type: Spontaneous
  Country: JP (occurrence: JP)
  Receive Date: 20150102
  Receipt Date: 20150102
  Transmission Date: 20150720
  Serious: Yes (Hospitalization)
  Sender: FDA-Public Use
  Company Number: JP-ACCORD-027903

PATIENT
  Age: 4 Year
  Sex: Female

DRUGS (1)
  1. METHOTREXATE [Suspect]
     Active Substance: METHOTREXATE
     Indication: ACUTE LYMPHOCYTIC LEUKAEMIA
     Dosage: 21ST INTRATHECAL METHOTREXATE ADMINISTRATION
     Route: 039

REACTIONS (3)
  - Quadriplegia [Not Recovered/Not Resolved]
  - Encephalomyelitis [Unknown]
  - Nervous system disorder [Not Recovered/Not Resolved]
